FAERS Safety Report 6743481-0 (Version None)
Quarter: 2010Q2

REPORT INFORMATION
  Report Type: 
  Country: None (occurrence: None)
  Receive Date: 20100527
  Receipt Date: 20100517
  Transmission Date: 20101027
  Serious: Yes (Hospitalization, Other)
  Sender: FDA-Public Use
  Company Number: SI-NOVOPROD-288690

PATIENT
  Sex: Male
  Weight: 71.7 kg

DRUGS (5)
  1. LIRAGLUTIDE [Suspect]
     Indication: TYPE 2 DIABETES MELLITUS
     Dosage: 1.8 MG, QD
     Route: 058
     Dates: start: 20081022, end: 20090710
  2. PRENESSA [Concomitant]
     Indication: HYPERTENSION
     Dosage: 4 MG, QD
     Route: 048
     Dates: start: 20080227
  3. ATORIS                             /01326101/ [Concomitant]
     Indication: HYPERLIPIDAEMIA
     Dosage: 20 MG, QD
     Route: 048
     Dates: start: 20080807
  4. ASPIRIN [Concomitant]
     Indication: CARDIOVASCULAR EVENT PROPHYLAXIS
     Dosage: 100 MG, QD
     Route: 048
     Dates: start: 20080227, end: 20090609
  5. ULTOP                              /00661201/ [Concomitant]
     Indication: PANCREATITIS
     Dates: start: 20090609

REACTIONS (5)
  - DIABETIC RETINOPATHY [None]
  - HEPATIC STEATOSIS [None]
  - PANCREATITIS [None]
  - PAPILLOEDEMA [None]
  - WEIGHT DECREASED [None]
